FAERS Safety Report 11757622 (Version 2)
Quarter: 2015Q4

REPORT INFORMATION
  Report Type: Spontaneous
  Country: RO (occurrence: RO)
  Receive Date: 20151120
  Receipt Date: 20151125
  Transmission Date: 20160304
  Serious: Yes (Congenital Anomaly, Other)
  Sender: FDA-Public Use
  Company Number: RO-VIIV HEALTHCARE LIMITED-RO2015GSK163419

PATIENT
  Age: 6 Year
  Sex: Male
  Weight: 4 kg

DRUGS (6)
  1. DIDANOSINE. [Concomitant]
     Active Substance: DIDANOSINE
     Indication: HIV INFECTION
  2. NORVIR [Suspect]
     Active Substance: RITONAVIR
     Indication: HIV INFECTION
     Route: 064
  3. STAVUDINE. [Concomitant]
     Active Substance: STAVUDINE
     Indication: HIV INFECTION
  4. LOPINAVIR [Suspect]
     Active Substance: LOPINAVIR
     Indication: HIV INFECTION
     Route: 064
  5. ZIDOVUDINE + LAMIVUDINE [Suspect]
     Active Substance: LAMIVUDINE\ZIDOVUDINE
     Indication: HIV INFECTION
     Route: 064
  6. INDINAVIR [Concomitant]
     Active Substance: INDINAVIR
     Indication: HIV INFECTION

REACTIONS (5)
  - Ventricular septal defect [Unknown]
  - Atrial septal defect [Unknown]
  - Aortic stenosis [Unknown]
  - Heart disease congenital [Unknown]
  - Hypertrophy [Unknown]

NARRATIVE: CASE EVENT DATE: 2009
